FAERS Safety Report 18196641 (Version 1)
Quarter: 2020Q3

REPORT INFORMATION
  Report Type: Spontaneous
  Country: US (occurrence: US)
  Receive Date: 20200825
  Receipt Date: 20200825
  Transmission Date: 20201103
  Serious: No
  Sender: FDA-Public Use
  Company Number: None

PATIENT
  Age: 44 Year
  Sex: Female
  Weight: 81 kg

DRUGS (6)
  1. MULTIVITAMINS [Concomitant]
     Active Substance: VITAMINS
  2. ORILISSA [Concomitant]
     Active Substance: ELAGOLIX SODIUM
  3. ORILISSA [Suspect]
     Active Substance: ELAGOLIX SODIUM
     Indication: UTERINE LEIOMYOMA
     Dosage: ?          QUANTITY:1 TABLET(S);?
  4. PROGESTERONE. [Concomitant]
     Active Substance: PROGESTERONE
  5. FERROUS SULFATE. [Concomitant]
     Active Substance: FERROUS SULFATE
  6. VITAMIN D [Concomitant]
     Active Substance: VITAMIN D NOS

REACTIONS (3)
  - Gingival disorder [None]
  - Gingival bleeding [None]
  - Gingival ulceration [None]

NARRATIVE: CASE EVENT DATE: 20200701
